FAERS Safety Report 15384870 (Version 1)
Quarter: 2018Q3

REPORT INFORMATION
  Report Type: Report from Study
  Country: DE (occurrence: DE)
  Receive Date: 20180914
  Receipt Date: 20180914
  Transmission Date: 20181010
  Serious: Yes (Hospitalization)
  Sender: FDA-Public Use
  Company Number: DE-TEVA-2018-DE-954600

PATIENT
  Age: 62 Year
  Sex: Male
  Weight: 85 kg

DRUGS (16)
  1. FLUOROURACIL. [Suspect]
     Active Substance: FLUOROURACIL
     Route: 040
     Dates: start: 20180807
  2. PANITUMUMAB [Suspect]
     Active Substance: PANITUMUMAB
     Indication: COLORECTAL CANCER METASTATIC
     Dosage: 510 MILLIGRAM DAILY;
     Route: 042
     Dates: start: 20180807
  3. NOVAMINSULFON [Concomitant]
     Active Substance: METAMIZOLE
     Dates: start: 20180726
  4. LOPERAMID AKUT [Concomitant]
     Dates: start: 20180726
  5. CALCIUM FOLINATE [Suspect]
     Active Substance: LEUCOVORIN CALCIUM
     Indication: COLORECTAL CANCER METASTATIC
     Dosage: 780 MILLIGRAM DAILY;
     Route: 065
     Dates: start: 20180807
  6. CANDECOR [Concomitant]
     Active Substance: CANDESARTAN CILEXETIL
     Dates: start: 20151113
  7. IBUPROFEN. [Concomitant]
     Active Substance: IBUPROFEN
     Dates: start: 20180717
  8. CALCIVIT D [Concomitant]
     Dates: start: 20180726
  9. FENTANYL BETA [Concomitant]
     Dates: start: 20180802
  10. METRONIDAZOLE. [Concomitant]
     Active Substance: METRONIDAZOLE
     Dates: start: 20180717
  11. FLUOROURACIL. [Suspect]
     Active Substance: FLUOROURACIL
     Indication: COLORECTAL CANCER METASTATIC
     Dosage: 775 MILLIGRAM DAILY;
     Route: 042
     Dates: start: 20180807
  12. MCP?RATIOPHARM [Concomitant]
     Active Substance: METOCLOPRAMIDE HYDROCHLORIDE
     Dates: start: 20180807
  13. DOXYCYCLIN RATIOPHARM [Concomitant]
     Dates: start: 20180717
  14. DEXAMETHASONE. [Concomitant]
     Active Substance: DEXAMETHASONE
     Dates: start: 20180807
  15. GRANISETRON [Concomitant]
     Active Substance: GRANISETRON
     Dates: start: 20180807
  16. EFFENTORA [Concomitant]
     Active Substance: FENTANYL CITRATE
     Dates: start: 20180802

REACTIONS (1)
  - Diarrhoea [Unknown]

NARRATIVE: CASE EVENT DATE: 20180813
